FAERS Safety Report 9895630 (Version 1)
Quarter: 2014Q1

REPORT INFORMATION
  Report Type: Spontaneous
  Country: GB (occurrence: GB)
  Receive Date: 20140213
  Receipt Date: 20140213
  Transmission Date: 20141002
  Serious: Yes (Hospitalization)
  Sender: FDA-Public Use
  Company Number: PHFR2014GB001317

PATIENT
  Age: 48 Year
  Sex: Female
  Weight: 104 kg

DRUGS (1)
  1. AFONGIL [Suspect]
     Indication: ONYCHOMYCOSIS
     Dosage: UNK UKN, UNK
     Route: 048
     Dates: start: 20131115, end: 20131207

REACTIONS (3)
  - VIIth nerve paralysis [Recovering/Resolving]
  - Headache [Recovered/Resolved]
  - Dysgeusia [Unknown]
